FAERS Safety Report 25284596 (Version 2)
Quarter: 2025Q2

REPORT INFORMATION
  Report Type: Spontaneous
  Country: BR (occurrence: BR)
  Receive Date: 20250508
  Receipt Date: 20250516
  Transmission Date: 20250717
  Serious: Yes (Hospitalization, Other)
  Sender: ALEXION PHARMACEUTICALS
  Company Number: BR-AstraZeneca-CH-00860644A

PATIENT
  Age: 18 Year

DRUGS (3)
  1. SOLIRIS [Suspect]
     Active Substance: ECULIZUMAB
     Route: 065
  2. SOLIRIS [Suspect]
     Active Substance: ECULIZUMAB
     Route: 065
  3. SOLIRIS [Suspect]
     Active Substance: ECULIZUMAB
     Route: 065

REACTIONS (16)
  - Thrombotic microangiopathy [Unknown]
  - Pericardial effusion [Unknown]
  - Azotaemia [Unknown]
  - Renal tubular injury [Unknown]
  - Kidney fibrosis [Unknown]
  - Dengue fever [Unknown]
  - Hypertension [Unknown]
  - Acute kidney injury [Unknown]
  - Anuria [Unknown]
  - Kidney transplant rejection [Unknown]
  - Biopsy kidney abnormal [Unknown]
  - Focal segmental glomerulosclerosis [Unknown]
  - Left ventricular hypertrophy [Unknown]
  - Diastolic dysfunction [Unknown]
  - Left atrial enlargement [Unknown]
  - Arteritis [Unknown]
